FAERS Safety Report 19932090 (Version 1)
Quarter: 2021Q4

REPORT INFORMATION
  Report Type: Spontaneous
  Country: HR (occurrence: HR)
  Receive Date: 20211008
  Receipt Date: 20211008
  Transmission Date: 20220304
  Serious: Yes (Other)
  Sender: FDA-Public Use
  Company Number: HR-009507513-2110HRV001850

PATIENT
  Age: 56 Year
  Sex: Male

DRUGS (2)
  1. RIBAVIRIN [Suspect]
     Active Substance: RIBAVIRIN
     Dosage: 48 WEEKS
     Route: 048
     Dates: start: 2008, end: 2009
  2. PEGASYS [Concomitant]
     Active Substance: PEGINTERFERON ALFA-2A
     Dosage: UNK
     Dates: start: 2008, end: 2009

REACTIONS (1)
  - Hepatitis C [Unknown]
